FAERS Safety Report 10289386 (Version 1)
Quarter: 2014Q3

REPORT INFORMATION
  Report Type: Spontaneous
  Country: GB (occurrence: GB)
  Receive Date: 20140710
  Receipt Date: 20140710
  Transmission Date: 20150326
  Serious: Yes (Disabling, Other)
  Sender: FDA-Public Use
  Company Number: GB-ACCORD-024652

PATIENT
  Age: 85 Year
  Sex: Female
  Weight: 60 kg

DRUGS (5)
  1. LETROZOLE. [Suspect]
     Active Substance: LETROZOLE
     Indication: BREAST CANCER STAGE II
     Route: 048
     Dates: start: 2011, end: 20140414
  2. QUININE [Concomitant]
     Active Substance: QUININE
  3. SEREVENT [Concomitant]
     Active Substance: SALMETEROL XINAFOATE
  4. TOLTERODINE/TOLTERODINE L-TARTRATE [Concomitant]
  5. FLIXOTIDE [Concomitant]
     Active Substance: FLUTICASONE PROPIONATE

REACTIONS (3)
  - Musculoskeletal pain [Recovered/Resolved]
  - Pruritus generalised [Recovering/Resolving]
  - Gait disturbance [Unknown]

NARRATIVE: CASE EVENT DATE: 2012
